FAERS Safety Report 18950784 (Version 2)
Quarter: 2021Q1

REPORT INFORMATION
  Report Type: Spontaneous
  Country: NL (occurrence: NL)
  Receive Date: 20210228
  Receipt Date: 20210307
  Transmission Date: 20210420
  Serious: Yes (Death)
  Sender: FDA-Public Use
  Company Number: NL-TEVA-2021-NL-1883468

PATIENT
  Age: 94 Year
  Sex: Female
  Weight: 43 kg

DRUGS (5)
  1. OMEPRAZOL CAPSULE MSR 40MG / BRAND NAME NOT SPECIFIED [Concomitant]
     Active Substance: OMEPRAZOLE
     Dosage: 40 MG (MILLIGRAM),THERAPY START DATE :ASKU,THERAPY END DATE :ASKU
  2. MACROGOL/ZOUTEN CONC. VOOR DRANK / BRAND NAME NOT SPECIFIED [Concomitant]
     Dosage: SOLUTION FOR DRINK,THERAPY START DATE :ASKU,THERAPY END DATE :ASKU
  3. PARACETAMOL TABLET  500MG / BRAND NAME NOT SPECIFIED [Concomitant]
     Dosage: 500 MG (MILLIGRAM),THERAPY START DATE :ASKU,THERAPY END DATE :ASKU
  4. COLECALCIFEROL CAPSULE    800IE / BRAND NAME NOT SPECIFIED [Concomitant]
     Dosage: 800 UNITS,THERAPY START DATE :ASKU,THERAPY END DATE :ASKU
  5. OXYCODON CAPSULE  5MG / BRAND NAME NOT SPECIFIED [Suspect]
     Active Substance: OXYCODONE
     Indication: PAIN
     Dosage: 15 MILLIGRAM DAILY;
     Dates: start: 20210202, end: 20210205

REACTIONS (4)
  - Oxygen saturation decreased [Fatal]
  - Nausea [Fatal]
  - Vomiting [Fatal]
  - Pyrexia [Fatal]

NARRATIVE: CASE EVENT DATE: 20210204
